FAERS Safety Report 6277090-7 (Version None)
Quarter: 2009Q3

REPORT INFORMATION
  Report Type: 
  Country: None (occurrence: None)
  Receive Date: 20090722
  Receipt Date: 20090105
  Transmission Date: 20100115
  Serious: No
  Sender: FDA-Public Use
  Company Number: US-BRISTOL-MYERS SQUIBB COMPANY-14460406

PATIENT
  Age: 73 Year
  Sex: Female
  Weight: 62 kg

DRUGS (8)
  1. COUMADIN [Suspect]
     Indication: THROMBOSIS PROPHYLAXIS
     Dosage: CHANGED DOSAGE TIME FROM BEDTIME TO DINNERTIME
  2. COUMADIN [Suspect]
     Indication: HEART RATE IRREGULAR
     Dosage: CHANGED DOSAGE TIME FROM BEDTIME TO DINNERTIME
  3. MULTI-VITAMIN [Concomitant]
  4. CALCIUM [Concomitant]
  5. MAGNESIUM [Concomitant]
  6. POTASSIUM CHLORIDE [Concomitant]
  7. ASCORBIC ACID [Concomitant]
  8. VITAMIN D [Concomitant]

REACTIONS (2)
  - ANXIETY [None]
  - DYSPNOEA [None]
